FAERS Safety Report 5980687-2 (Version None)
Quarter: 2008Q4

REPORT INFORMATION
  Report Type: 
  Country: None (occurrence: None)
  Receive Date: 20081205
  Receipt Date: 20080313
  Transmission Date: 20090506
  Serious: No
  Sender: FDA-Public Use
  Company Number: A0715094A

PATIENT
  Age: 63 Year
  Sex: Female

DRUGS (2)
  1. COMMIT [Suspect]
     Dates: start: 20080113
  2. RISPERDAL [Concomitant]

REACTIONS (2)
  - DELUSION [None]
  - DRUG INTERACTION [None]
